FAERS Safety Report 10009629 (Version 2)
Quarter: 2014Q1

REPORT INFORMATION
  Report Type: Spontaneous
  Country: US (occurrence: US)
  Receive Date: 20140312
  Receipt Date: 20140312
  Transmission Date: 20141002
  Serious: No
  Sender: FDA-Public Use
  Company Number: US-INCYTE CORPORATION-2012IN002038

PATIENT
  Sex: 0

DRUGS (6)
  1. JAKAFI [Suspect]
     Indication: MYELOFIBROSIS
     Dosage: 15 MG, BID
     Route: 048
     Dates: start: 201206, end: 201207
  2. JAKAFI [Suspect]
     Dosage: 10 MG, BID
     Route: 048
     Dates: start: 201208, end: 201209
  3. CARAFATE [Concomitant]
  4. PROTONIX [Concomitant]
  5. QUESTRAN [Concomitant]
  6. XANAX [Concomitant]

REACTIONS (4)
  - Abdominal discomfort [Recovered/Resolved]
  - Back pain [Unknown]
  - Non-cardiac chest pain [Unknown]
  - Drug ineffective [Unknown]
